FAERS Safety Report 10167462 (Version 1)
Quarter: 2014Q2

REPORT INFORMATION
  Report Type: Spontaneous
  Country: SE (occurrence: SE)
  Receive Date: 20140512
  Receipt Date: 20140512
  Transmission Date: 20141212
  Serious: Yes (Life-Threatening, Hospitalization)
  Sender: FDA-Public Use
  Company Number: SE-ASTRAZENECA-2014SE31647

PATIENT
  Age: 55 Year
  Sex: Female

DRUGS (5)
  1. SEROQUEL [Suspect]
     Route: 048
     Dates: start: 20130217, end: 20130217
  2. MIRTAZAPINE [Suspect]
     Route: 048
     Dates: start: 20130217, end: 20130217
  3. STESOLID [Suspect]
     Dates: start: 20130217, end: 20130217
  4. PROPAVAN [Suspect]
     Dates: start: 20130217, end: 20130217
  5. LEVAXIN [Concomitant]
     Indication: HYPOTHYROIDISM

REACTIONS (2)
  - Suicide attempt [Recovered/Resolved]
  - Toxicity to various agents [Recovered/Resolved]
